FAERS Safety Report 10057086 (Version 6)
Quarter: 2014Q3

REPORT INFORMATION
  Report Type: Spontaneous
  Country: US (occurrence: US)
  Receive Date: 20140403
  Receipt Date: 20140806
  Transmission Date: 20150326
  Serious: Yes (Hospitalization, Disabling, Other)
  Sender: FDA-Public Use
  Company Number: US-009507513-1404USA001551

PATIENT
  Sex: Male
  Weight: 79.5 kg

DRUGS (4)
  1. BYETTA [Suspect]
     Active Substance: EXENATIDE
     Indication: TYPE 2 DIABETES MELLITUS
     Dosage: 5 MICROGRAM, BID
     Dates: start: 20081003, end: 20081216
  2. JANUVIA [Suspect]
     Active Substance: SITAGLIPTIN PHOSPHATE
     Indication: TYPE 2 DIABETES MELLITUS
     Dosage: 100 MG, QD
     Route: 048
     Dates: start: 20080122, end: 20100619
  3. BYETTA [Suspect]
     Active Substance: EXENATIDE
     Dosage: 5 MICROGRAM, BID
     Dates: start: 20100127, end: 20100702
  4. VICTOZA [Suspect]
     Active Substance: LIRAGLUTIDE
     Indication: TYPE 2 DIABETES MELLITUS
     Dosage: 1.2 MG, QD
     Dates: start: 20100824, end: 20101011

REACTIONS (27)
  - Sinus tachycardia [Unknown]
  - Hordeolum [Unknown]
  - Pancreatitis [Unknown]
  - Renal mass [Unknown]
  - Hepatic lesion [Unknown]
  - Alpha haemolytic streptococcal infection [Unknown]
  - Oxygen saturation decreased [Unknown]
  - Anxiety [Unknown]
  - Constipation [Unknown]
  - Bile duct stent insertion [Unknown]
  - Laparoscopy [Unknown]
  - Lymphadenopathy [Unknown]
  - Hyperlipidaemia [Unknown]
  - Mental disorder [Not Recovered/Not Resolved]
  - Enostosis [Unknown]
  - Dyspnoea [Unknown]
  - Fatigue [Unknown]
  - Insulin-requiring type 2 diabetes mellitus [Unknown]
  - Substance use [Unknown]
  - Weight decreased [Unknown]
  - Pancreaticoduodenectomy [Unknown]
  - Type 1 diabetes mellitus [Unknown]
  - Hepatic lesion [Unknown]
  - Pulmonary mass [Unknown]
  - Pneumonia klebsiella [Unknown]
  - Adenocarcinoma pancreas [Not Recovered/Not Resolved]
  - Depression [Unknown]

NARRATIVE: CASE EVENT DATE: 201103
